FAERS Safety Report 24299526 (Version 1)
Quarter: 2024Q3

REPORT INFORMATION
  Report Type: Spontaneous
  Country: VN (occurrence: VN)
  Receive Date: 20240909
  Receipt Date: 20240909
  Transmission Date: 20241016
  Serious: Yes (Death)
  Sender: INCYTE
  Company Number: VN-002147023-NVSC2024VN178689

PATIENT

DRUGS (1)
  1. RUXOLITINIB [Suspect]
     Active Substance: RUXOLITINIB
     Indication: Myelofibrosis
     Dosage: UNK (FROM BEFORE 2023)
     Route: 065

REACTIONS (1)
  - Renal disorder [Fatal]
